FAERS Safety Report 7969934-5 (Version None)
Quarter: 2011Q4

REPORT INFORMATION
  Report Type: 
  Country: None (occurrence: None)
  Receive Date: 20111212
  Receipt Date: 20111207
  Transmission Date: 20120403
  Serious: Yes (Hospitalization)
  Sender: FDA-Public Use
  Company Number: US-BRISTOL-MYERS SQUIBB COMPANY-13344353

PATIENT
  Age: 46 Year
  Sex: Female
  Weight: 44 kg

DRUGS (8)
  1. VICODIN [Concomitant]
     Route: 048
     Dates: start: 20060308
  2. PACLITAXEL [Suspect]
     Indication: NON-SMALL CELL LUNG CANCER
     Route: 042
     Dates: start: 20060324
  3. AMITRIPTYLINE HCL [Concomitant]
     Route: 048
     Dates: start: 20060308
  4. SENOKOT [Concomitant]
     Dates: start: 20060323
  5. CARBOPLATIN [Suspect]
     Indication: NON-SMALL CELL LUNG CANCER
     Dosage: AUC=6MG
     Route: 042
     Dates: start: 20060324
  6. TESSALON [Concomitant]
     Indication: COUGH
     Dates: start: 20060323
  7. DURAGESIC-100 [Concomitant]
     Dosage: TRANDERMAL PATCH
     Route: 062
     Dates: start: 20060308
  8. ADVAIR DISKUS 100/50 [Concomitant]
     Indication: COUGH
     Route: 055
     Dates: start: 20060308

REACTIONS (1)
  - DEHYDRATION [None]
